FAERS Safety Report 18333528 (Version 2)
Quarter: 2020Q4

REPORT INFORMATION
  Report Type: Spontaneous
  Country: DE (occurrence: DE)
  Receive Date: 20201001
  Receipt Date: 20201015
  Transmission Date: 20210113
  Serious: Yes (Hospitalization)
  Sender: FDA-Public Use
  Company Number: DE-TEVA-2020-DE-1832918

PATIENT
  Age: 31 Year
  Sex: Female

DRUGS (4)
  1. QUETIAPINE IMMEDIATE RELEASE [Suspect]
     Active Substance: QUETIAPINE
     Indication: SUICIDE ATTEMPT
     Dosage: IMMEDIATE RELEASE
     Route: 048
  2. QUETIAPINE EXTENDED-RELEASE [Suspect]
     Active Substance: QUETIAPINE
     Indication: INTENTIONAL OVERDOSE
  3. QUETIAPINE EXTENDED-RELEASE [Suspect]
     Active Substance: QUETIAPINE
     Indication: SUICIDE ATTEMPT
     Dosage: EXTENDED-RELEASE
     Route: 048
  4. QUETIAPINE IMMEDIATE RELEASE [Suspect]
     Active Substance: QUETIAPINE
     Indication: INTENTIONAL OVERDOSE

REACTIONS (5)
  - Bezoar [Recovering/Resolving]
  - Suicide attempt [Recovering/Resolving]
  - Somnolence [Recovered/Resolved]
  - Toxicity to various agents [Recovering/Resolving]
  - Intentional overdose [Recovering/Resolving]
